FAERS Safety Report 4871320-1 (Version None)
Quarter: 2005Q4

REPORT INFORMATION
  Report Type: 
  Country: None (occurrence: None)
  Receive Date: 20051229
  Receipt Date: 20051223
  Transmission Date: 20060501
  Serious: Yes (Death, Life-Threatening, Hospitalization, Other)
  Sender: FDA-Public Use
  Company Number: 2005-08-0766

PATIENT
  Age: 61 Year
  Sex: Male

DRUGS (13)
  1. TEMODAR [Suspect]
     Indication: ASTROCYTOMA
     Dosage: 75 MG/M^2 ORAL
     Route: 048
     Dates: start: 20050707, end: 20050801
  2. RADIATION THERAPY [Suspect]
     Indication: ASTROCYTOMA
     Dosage: X-RAY THERAPY
     Dates: start: 20050707
  3. MOTRIN [Suspect]
     Dates: end: 20050801
  4. TEGRETOL [Suspect]
     Dates: end: 20050801
  5. NORVASC [Concomitant]
  6. CELEXA [Concomitant]
  7. ZOFRAN [Concomitant]
  8. CARBATROL [Concomitant]
  9. KEPPRA [Concomitant]
  10. VYTORIN [Concomitant]
  11. FISH OIL [Concomitant]
  12. XANAX [Concomitant]
  13. VICODIN [Concomitant]

REACTIONS (18)
  - CHILLS [None]
  - COMA [None]
  - CONVULSION [None]
  - CULTURE POSITIVE [None]
  - DEPRESSED LEVEL OF CONSCIOUSNESS [None]
  - DIALYSIS [None]
  - ENCEPHALITIS [None]
  - ENCEPHALOPATHY [None]
  - MALAISE [None]
  - MENINGITIS [None]
  - MENINGITIS FUNGAL [None]
  - MENTAL STATUS CHANGES [None]
  - NEPHRITIS [None]
  - PLEOCYTOSIS [None]
  - PNEUMONIA [None]
  - POLYARTERITIS NODOSA [None]
  - PYREXIA [None]
  - RENAL FAILURE ACUTE [None]
